FAERS Safety Report 19176281 (Version 4)
Quarter: 2021Q2

REPORT INFORMATION
  Report Type: Spontaneous
  Country: US (occurrence: US)
  Receive Date: 20210423
  Receipt Date: 20210622
  Transmission Date: 20210717
  Serious: Yes (Other)
  Sender: FDA-Public Use
  Company Number: 2020SGN03659

PATIENT
  Sex: Female

DRUGS (3)
  1. WELLBUTRIN [Suspect]
     Active Substance: BUPROPION HYDROCHLORIDE
     Indication: PRODUCT USED FOR UNKNOWN INDICATION
  2. XELODA [Suspect]
     Active Substance: CAPECITABINE
     Indication: PRODUCT USED FOR UNKNOWN INDICATION
  3. TUKYSA [Suspect]
     Active Substance: TUCATINIB
     Indication: BREAST CANCER FEMALE

REACTIONS (36)
  - Dizziness [Unknown]
  - Self-injurious ideation [Unknown]
  - Jaw operation [Unknown]
  - Hypotension [Unknown]
  - Dehydration [Unknown]
  - Diarrhoea [Recovering/Resolving]
  - Vomiting [Recovering/Resolving]
  - Eating disorder [Unknown]
  - Syncope [Unknown]
  - Incontinence [Unknown]
  - Dysphagia [Unknown]
  - Weight decreased [Unknown]
  - Abdominal pain upper [Unknown]
  - Decreased appetite [Unknown]
  - Product dose omission issue [Unknown]
  - Brain neoplasm [Unknown]
  - Feeling abnormal [Unknown]
  - Somnolence [Unknown]
  - Depressed mood [Unknown]
  - Amnesia [Unknown]
  - Panic attack [Unknown]
  - Anxiety [Unknown]
  - Sinus disorder [Unknown]
  - Memory impairment [Unknown]
  - Stress [Unknown]
  - Depression [Unknown]
  - Headache [Unknown]
  - Disease progression [Unknown]
  - Muscle spasms [Unknown]
  - Unevaluable event [Unknown]
  - Pain [Unknown]
  - Thirst [Unknown]
  - Nausea [Unknown]
  - Echocardiogram abnormal [Unknown]
  - Death of relative [Unknown]
  - Device related infection [Unknown]
